FAERS Safety Report 12652294 (Version 6)
Quarter: 2016Q4

REPORT INFORMATION
  Report Type: Report from Study
  Country: BR (occurrence: BR)
  Receive Date: 20160815
  Receipt Date: 20161116
  Transmission Date: 20170207
  Serious: Yes (Other)
  Sender: FDA-Public Use
  Company Number: PHHY2016BR111483

PATIENT
  Sex: Male
  Weight: 73.8 kg

DRUGS (3)
  1. MORPHINE [Suspect]
     Active Substance: MORPHINE
     Indication: PAIN
     Dosage: UNK UNK, BID IN THE MORNING AND AT NIGHT
     Route: 065
  2. AFINITOR [Suspect]
     Active Substance: EVEROLIMUS
     Indication: PANCREATIC NEUROENDOCRINE TUMOUR METASTATIC
     Dosage: 10 MG, QD
     Route: 048
     Dates: start: 2012, end: 2015
  3. SANDOSTATIN LAR DEPOT [Suspect]
     Active Substance: OCTREOTIDE ACETATE
     Indication: NEUROENDOCRINE TUMOUR
     Dosage: 30 MG, QMO (ONCE A MONTH)
     Route: 030

REACTIONS (18)
  - Tooth fracture [Unknown]
  - Tooth injury [Unknown]
  - Fatigue [Unknown]
  - Tooth loss [Unknown]
  - Nail disorder [Unknown]
  - Nail picking [Unknown]
  - Onychoclasis [Unknown]
  - Malignant neoplasm progression [Unknown]
  - Memory impairment [Unknown]
  - Inflammation [Unknown]
  - Hepatomegaly [Unknown]
  - Blindness unilateral [Unknown]
  - Device failure [Unknown]
  - Therapeutic response decreased [Unknown]
  - Visual acuity reduced [Unknown]
  - Back disorder [Unknown]
  - Visual impairment [Unknown]
  - Decreased immune responsiveness [Unknown]
